FAERS Safety Report 4540368-9 (Version None)
Quarter: 2004Q4

REPORT INFORMATION
  Report Type: 
  Country: None (occurrence: None)
  Receive Date: 20041222
  Receipt Date: 20041201
  Transmission Date: 20050328
  Serious: Yes (Hospitalization, Other)
  Sender: FDA-Public Use
  Company Number: FR_041005057

PATIENT
  Age: 62 Year
  Sex: Female
  Weight: 103 kg

DRUGS (3)
  1. GEMZAR [Suspect]
     Indication: PANCREATIC CARCINOMA
     Dosage: 1000 MG/M2/1 EVERY OTHER WEEK
     Dates: start: 20020722, end: 20040501
  2. OXALIPLATIN [Concomitant]
  3. NEURONTIN (GABAPENTIN PFIZER) [Concomitant]

REACTIONS (5)
  - CARDIAC FAILURE [None]
  - ERYSIPELAS [None]
  - NEUROPATHY PERIPHERAL [None]
  - OEDEMA PERIPHERAL [None]
  - REFUSAL OF TREATMENT BY PATIENT [None]
